FAERS Safety Report 5374746-5 (Version None)
Quarter: 2007Q2

REPORT INFORMATION
  Report Type: 
  Country: None (occurrence: None)
  Receive Date: 20070629
  Receipt Date: 20070626
  Transmission Date: 20071010
  Serious: Yes (Other)
  Sender: FDA-Public Use
  Company Number: US-RB-007027-07

PATIENT
  Sex: Male
  Weight: 63.45 kg

DRUGS (3)
  1. SUBOXONE [Suspect]
     Route: 060
     Dates: end: 20070401
  2. SUBOXONE [Suspect]
     Route: 060
     Dates: start: 20070401
  3. TAMSULOSIN HCL [Concomitant]
     Dates: start: 20070401

REACTIONS (1)
  - URINARY RETENTION [None]
